FAERS Safety Report 7323700-2 (Version None)
Quarter: 2011Q1

REPORT INFORMATION
  Report Type: 
  Country: None (occurrence: None)
  Receive Date: 20110301
  Receipt Date: 20110221
  Transmission Date: 20110831
  Serious: Yes (Life-Threatening)
  Sender: FDA-Public Use
  Company Number: NL-GENZYME-CLOF-1001395

PATIENT
  Sex: Male
  Weight: 95 kg

DRUGS (3)
  1. EVOLTRA [Suspect]
     Indication: ACUTE LEUKAEMIA
     Dosage: 20 MG, QOD
     Route: 042
     Dates: start: 20101114, end: 20101122
  2. CYTOSINE ARABINOSIDE [Suspect]
     Indication: ACUTE LEUKAEMIA
     Dosage: 200 MG, QD
     Route: 042
     Dates: start: 20101113, end: 20101122
  3. IDARUBICIN [Suspect]
     Indication: ACUTE LEUKAEMIA
     Dosage: 20 MG, QOD
     Route: 042
     Dates: start: 20101113, end: 20101117

REACTIONS (1)
  - PANCYTOPENIA [None]
